FAERS Safety Report 19096452 (Version 1)
Quarter: 2021Q2

REPORT INFORMATION
  Report Type: Spontaneous
  Country: FR (occurrence: FR)
  Receive Date: 20210406
  Receipt Date: 20210406
  Transmission Date: 20210717
  Serious: Yes (Hospitalization, Other)
  Sender: FDA-Public Use
  Company Number: FR-SUN PHARMACEUTICAL INDUSTRIES LTD-2021RR-289981

PATIENT
  Age: 61 Year
  Sex: Male

DRUGS (6)
  1. GEMCITABINE. [Suspect]
     Active Substance: GEMCITABINE
     Indication: COLON CANCER
     Dosage: 2 CYCLES
     Route: 065
  2. IRINOTECAN [Suspect]
     Active Substance: IRINOTECAN
     Indication: COLON CANCER
     Dosage: 12 CYCLES OF FOLFIRI
     Route: 065
  3. FLUOROURACIL. [Suspect]
     Active Substance: FLUOROURACIL
     Indication: COLON CANCER
     Dosage: 10 CYCLES OF THE FOLFOX, 12 CYLES OF FOLFIRI
     Route: 065
  4. OXALIPLATIN. [Suspect]
     Active Substance: OXALIPLATIN
     Dosage: 10 CYCLES OF THE FOLFOX REGIMEN
     Route: 065
  5. FOLINIC ACID [Suspect]
     Active Substance: LEUCOVORIN
     Indication: COLON CANCER
     Dosage: 10 CYCLES OF THE FOLFOX, 12 CYLES OF FOLFIRI
     Route: 065
  6. OXALIPLATIN. [Suspect]
     Active Substance: OXALIPLATIN
     Indication: COLON CANCER
     Dosage: 2 CYCLES
     Route: 065

REACTIONS (5)
  - Asthenia [Unknown]
  - Toxicity to various agents [Unknown]
  - Therapeutic product effect incomplete [Unknown]
  - Metastases to liver [Unknown]
  - Thrombocytopenia [Unknown]
